FAERS Safety Report 4523121-1 (Version None)
Quarter: 2004Q4

REPORT INFORMATION
  Report Type: 
  Country: None (occurrence: None)
  Receive Date: 20041208
  Receipt Date: 20041129
  Transmission Date: 20050328
  Serious: Yes (Hospitalization)
  Sender: FDA-Public Use
  Company Number: 2004EU002142

PATIENT
  Age: 33 Year
  Sex: Female

DRUGS (3)
  1. PROGRAF [Suspect]
     Indication: RENAL TRANSPLANT
     Dosage: 0.50 MG/KG,
  2. AZATHIOPRINE [Concomitant]
  3. PREDNISOLONE [Concomitant]

REACTIONS (7)
  - ABDOMINAL DISTENSION [None]
  - ABSCESS [None]
  - BLOOD CREATININE INCREASED [None]
  - FISTULA [None]
  - RENAL PELVIS FISTULA [None]
  - SWELLING [None]
  - TRANSPLANT ABSCESS [None]
